FAERS Safety Report 20455586 (Version 1)
Quarter: 2022Q1

REPORT INFORMATION
  Report Type: Spontaneous
  Country: US (occurrence: US)
  Receive Date: 20220210
  Receipt Date: 20220210
  Transmission Date: 20220423
  Serious: No
  Sender: FDA-Public Use
  Company Number: US-ELI_LILLY_AND_COMPANY-US202202003395

PATIENT
  Sex: Female

DRUGS (1)
  1. OLUMIANT [Suspect]
     Active Substance: BARICITINIB
     Indication: Vitiligo
     Dosage: 2 MG, UNKNOWN
     Route: 048
     Dates: start: 201909, end: 2020

REACTIONS (2)
  - Vitiligo [Not Recovered/Not Resolved]
  - Off label use [Unknown]
